FAERS Safety Report 5596082-4 (Version None)
Quarter: 2008Q1

REPORT INFORMATION
  Report Type: 
  Country: None (occurrence: None)
  Receive Date: 20080118
  Receipt Date: 20080113
  Transmission Date: 20080703
  Serious: Yes (Other)
  Sender: FDA-Public Use
  Company Number: GB-ROCHE-541345

PATIENT
  Age: 51 Year
  Sex: Male
  Weight: 134.5 kg

DRUGS (7)
  1. ORLISTAT [Suspect]
     Indication: OBESITY
     Route: 048
     Dates: start: 20070912
  2. ATORVASTATIN [Concomitant]
     Route: 048
  3. ASPIRIN [Concomitant]
     Route: 048
  4. MINOCYCLINE HCL [Concomitant]
     Indication: ACNE
     Route: 048
  5. 1 CONCOMITANT DRUG [Concomitant]
     Indication: HYPERTENSION
     Dosage: DRUG REPORTED AS RAPAMRIL.
     Route: 048
  6. DOXAZOSIN [Concomitant]
     Indication: HYPERTENSION
     Route: 048
  7. CO-PROXAMOL [Concomitant]
     Indication: PAIN
     Dosage: WHEN NEEDED.
     Route: 048

REACTIONS (1)
  - ANGINA PECTORIS [None]
